FAERS Safety Report 8202133-0 (Version None)
Quarter: 2012Q1

REPORT INFORMATION
  Report Type: 
  Country: None (occurrence: None)
  Receive Date: 20120312
  Receipt Date: 20120227
  Transmission Date: 20120608
  Serious: Yes (Hospitalization)
  Sender: FDA-Public Use
  Company Number: JP-UCBSA-030917

PATIENT
  Age: 69 Year
  Sex: Female

DRUGS (28)
  1. BETAMETHASONE BUTYRATE PROPINATE [Concomitant]
     Dosage: ADEQUATE DOSE
     Dates: start: 20100518
  2. FERROUS FUMARATE [Concomitant]
     Dates: start: 20110420, end: 20120220
  3. FOLIC ACID [Concomitant]
     Dates: start: 20060218, end: 20110327
  4. LOXOPROFEN SODIUM [Concomitant]
     Dates: start: 20060218, end: 20110330
  5. DEXAMETHASONE PALMITATE [Concomitant]
     Dates: start: 20110527, end: 20120124
  6. FOLIC ACID [Concomitant]
     Dates: start: 20110424, end: 20120219
  7. CALCIPOTRIOL [Concomitant]
     Dosage: ADEQUATE DOSE
     Dates: start: 20101117
  8. UREA [Concomitant]
     Dates: start: 20111129
  9. HYDROCORTISONE BUTYRATE [Concomitant]
     Dates: start: 20110517
  10. RHEUMATREX [Suspect]
     Route: 048
     Dates: start: 20111202, end: 20120218
  11. LOXOPROFEN SODIUM [Concomitant]
     Dates: start: 20110414, end: 20120220
  12. MISOPROSTOL [Concomitant]
     Dates: start: 20060218, end: 20110330
  13. CERTOLIZUMAB PEGOL [Suspect]
     Route: 058
     Dates: start: 20090422, end: 20090101
  14. PREDNISOLONE [Suspect]
     Route: 048
     Dates: start: 20110412, end: 20120220
  15. OMEPRAZOLE [Concomitant]
     Dates: start: 20060218, end: 20110330
  16. UREA [Concomitant]
     Dates: start: 20110419
  17. LANOCONAZOLE [Concomitant]
     Dates: start: 20110618
  18. CERTOLIZUMAB PEGOL [Suspect]
     Route: 058
     Dates: start: 20091106, end: 20101019
  19. PREDNISOLONE [Suspect]
     Indication: RHEUMATOID ARTHRITIS
     Route: 048
     Dates: start: 20100714, end: 20110330
  20. OMEPRAZOLE [Concomitant]
     Dates: start: 20120223
  21. RHEUMATREX [Suspect]
     Indication: RHEUMATOID ARTHRITIS
     Route: 048
     Dates: start: 20090129, end: 20110326
  22. RHEUMATREX [Suspect]
     Route: 048
     Dates: start: 20110419
  23. OMEPRAZOLE [Concomitant]
     Dates: start: 20110406, end: 20120220
  24. ALFACALCIDOL [Concomitant]
     Dates: start: 20110406, end: 20120220
  25. LIRANAFTATE [Concomitant]
     Dosage: EACH TIME ADEQUATE DOSE
     Dates: start: 20091006
  26. CERTOLIZUMAB PEGOL [Suspect]
     Indication: RHEUMATOID ARTHRITIS
     Route: 058
     Dates: start: 20101102
  27. MISOPROSTOL [Concomitant]
     Dates: start: 20110414, end: 20120220
  28. ALFACALCIDOL [Concomitant]
     Dates: start: 20090429, end: 20110330

REACTIONS (2)
  - ENTEROCOLITIS [None]
  - INFLUENZA [None]
